FAERS Safety Report 19660581 (Version 1)
Quarter: 2021Q3

REPORT INFORMATION
  Report Type: Spontaneous
  Country: US (occurrence: US)
  Receive Date: 20210805
  Receipt Date: 20210805
  Transmission Date: 20211014
  Serious: No
  Sender: FDA-Public Use
  Company Number: US-BAUSCH-BL-2021-026516

PATIENT
  Age: 70 Year
  Sex: Male

DRUGS (1)
  1. MOVIPREP [Suspect]
     Active Substance: ASCORBIC ACID\POLYETHYLENE GLYCOL 3350\POTASSIUM CHLORIDE\SODIUM ASCORBATE\SODIUM CHLORIDE\SODIUM SULFATE
     Indication: BOWEL PREPARATION
     Route: 065

REACTIONS (10)
  - Malaise [Unknown]
  - Product taste abnormal [Unknown]
  - Fatigue [Unknown]
  - Sleep disorder [Unknown]
  - Retching [Unknown]
  - Abdominal pain [Unknown]
  - Decreased appetite [Unknown]
  - Pyrexia [Unknown]
  - Product use complaint [Unknown]
  - Diarrhoea [Recovered/Resolved]
